FAERS Safety Report 6007356-7 (Version None)
Quarter: 2008Q4

REPORT INFORMATION
  Report Type: 
  Country: None (occurrence: None)
  Receive Date: 20081217
  Receipt Date: 20080317
  Transmission Date: 20090506
  Serious: No
  Sender: FDA-Public Use
  Company Number: US-ASTRAZENECA-2008UW05328

PATIENT
  Age: 857 Month
  Sex: Male

DRUGS (2)
  1. CRESTOR [Suspect]
     Route: 048
     Dates: start: 20080301
  2. TOO MANY AND DID NOT FEEL HE NEEDED TO MENTION [Concomitant]

REACTIONS (1)
  - SKIN DISORDER [None]
